FAERS Safety Report 7415764-2 (Version None)
Quarter: 2011Q2

REPORT INFORMATION
  Report Type: 
  Country: None (occurrence: None)
  Receive Date: 20110406
  Receipt Date: 20110324
  Transmission Date: 20111010
  Serious: Yes (Other)
  Sender: FDA-Public Use
  Company Number: 2011SP013740

PATIENT
  Age: 49 Year
  Sex: Male

DRUGS (2)
  1. INTERFERON ALFA-2B RECOMBINANT (INTERFERON ALFA-2B) [Suspect]
     Indication: MELANOMA RECURRENT
     Dosage: TIW
  2. INTERFERON ALFA-2B RECOMBINANT (INTERFERON ALFA-2B) [Suspect]
     Indication: MELANOMA RECURRENT
     Dosage: TIW
     Dates: start: 20090401

REACTIONS (2)
  - LYMPHADENOPATHY MEDIASTINAL [None]
  - HILAR LYMPHADENOPATHY [None]
